FAERS Safety Report 10064431 (Version 1)
Quarter: 2014Q2

REPORT INFORMATION
  Report Type: Spontaneous
  Country: JP (occurrence: None)
  Receive Date: 20140404
  Receipt Date: 20140404
  Transmission Date: 20141212
  Serious: Yes (Hospitalization)
  Sender: FDA-Public Use
  Company Number: SYM-2014-19244

PATIENT
  Age: 64 Year
  Sex: Male
  Weight: 71 kg

DRUGS (20)
  1. FLUOROURACIL [Suspect]
     Indication: COLORECTAL CANCER
     Route: 042
     Dates: start: 20060406, end: 20060406
  2. ELPLAT [Suspect]
     Indication: RECTAL CANCER
     Route: 042
     Dates: start: 20060406, end: 20060406
  3. LEUCOVORIN [Suspect]
     Indication: COLON CANCER
     Route: 042
     Dates: start: 20060406
  4. CAMPTO [Suspect]
     Indication: COLON CANCER
     Route: 041
     Dates: start: 20070221, end: 20070221
  5. CAMPTO [Suspect]
     Indication: RECTAL CANCER
     Route: 041
     Dates: start: 20070221, end: 20070221
  6. CALCIUM LEVOFOLINATE [Concomitant]
  7. DEXART (DEXAMETHASONE SODIUM PHOSPHATE) [Concomitant]
  8. SOLU-CORTEF (HYDROCORTISONE SODIUM SUCCINATE) [Concomitant]
  9. DECADRON (DEXAMETHASONE) [Concomitant]
  10. DAIKENTYUYO (HERBAL EXTRACT NOS) [Concomitant]
  11. MAGLAX (MAGNESIUM OXIDE) [Concomitant]
  12. KYTRIL (GRANISETRON HYDROCHLORIDE) (GRANISETRON HYDROCHLORIDE) [Concomitant]
  13. GASTER D (FAMOTIDINE) [Concomitant]
  14. CIPROXAN (CIPROFLOXACIN HYDROCHLORIDE) [Concomitant]
  15. LOXOPROFEN [Concomitant]
  16. MUCOSOLVAN (AMBROXOL HYDROCHLORIDE) [Concomitant]
  17. ASTOMIN (DIMEMORFAN PHOSPHATE) [Concomitant]
  18. SOLANAX (ALPRAZOLAM) [Concomitant]
  19. PRIMPERAN (METOCLOPRAMIDE HYDROCHLORIDE) [Concomitant]
  20. CODEINE PHOSPHATE [Concomitant]

REACTIONS (6)
  - Hypersensitivity [None]
  - Nausea [None]
  - Neuropathy peripheral [None]
  - White blood cell count decreased [None]
  - Neutrophil count decreased [None]
  - Interstitial lung disease [None]
